FAERS Safety Report 13339428 (Version 1)
Quarter: 2017Q1

REPORT INFORMATION
  Report Type: Spontaneous
  Country: US (occurrence: US)
  Receive Date: 20170315
  Receipt Date: 20170315
  Transmission Date: 20170428
  Serious: No
  Sender: FDA-Public Use
  Company Number: US-TEVA-742478USA

PATIENT
  Sex: Female
  Weight: 61.29 kg

DRUGS (3)
  1. QVAR [Suspect]
     Active Substance: BECLOMETHASONE DIPROPIONATE
     Indication: ALLERGY TO PLANTS
  2. QVAR [Suspect]
     Active Substance: BECLOMETHASONE DIPROPIONATE
     Indication: ASTHMA
  3. QVAR [Suspect]
     Active Substance: BECLOMETHASONE DIPROPIONATE
     Indication: RESPIRATION ABNORMAL

REACTIONS (5)
  - Erythema [Unknown]
  - Malaise [Unknown]
  - Rash [Unknown]
  - Pyrexia [Unknown]
  - Chills [Unknown]
